FAERS Safety Report 5460310-6 (Version None)
Quarter: 2007Q3

REPORT INFORMATION
  Report Type: 
  Country: None (occurrence: None)
  Receive Date: 20070919
  Receipt Date: 20070613
  Transmission Date: 20080115
  Serious: No
  Sender: FDA-Public Use
  Company Number: US-ASTRAZENECA-2007UW14152

PATIENT
  Age: 47 Year
  Sex: Male

DRUGS (6)
  1. SEROQUEL [Suspect]
     Dosage: TOOK ONE DOSE
     Route: 048
  2. ZOLOFT [Concomitant]
  3. AMBIEN [Concomitant]
  4. LAMICTAL [Concomitant]
  5. DEPLIN [Concomitant]
  6. VITAMIN [Concomitant]

REACTIONS (6)
  - ANXIETY [None]
  - DYSPNOEA [None]
  - FORMICATION [None]
  - HYPERSENSITIVITY [None]
  - HYPOVENTILATION [None]
  - NERVOUSNESS [None]
